FAERS Safety Report 7752332-7 (Version None)
Quarter: 2011Q3

REPORT INFORMATION
  Report Type: 
  Country: None (occurrence: None)
  Receive Date: 20110915
  Receipt Date: 20110902
  Transmission Date: 20111222
  Serious: Yes (Other)
  Sender: FDA-Public Use
  Company Number: US-ELI_LILLY_AND_COMPANY-US201107008085

PATIENT
  Sex: Female
  Weight: 59.41 kg

DRUGS (9)
  1. OMEPRAZOLE [Concomitant]
  2. LOSARTAN POTASSIUM [Concomitant]
  3. TRIAMTERENE AND HYDROCHLOROTHIAZIDE [Concomitant]
  4. METHENAMINE HIPPURATE [Concomitant]
  5. METOPROLOL TARTRATE [Concomitant]
  6. ALENDRONATE SODIUM [Concomitant]
  7. CYMBALTA [Suspect]
     Indication: ANXIETY
     Dosage: 60 MG, QD
     Route: 048
  8. CYMBALTA [Suspect]
     Dosage: 30 MG, QD
     Route: 048
     Dates: end: 20110810
  9. LOVASTATIN [Concomitant]

REACTIONS (10)
  - ABNORMAL FAECES [None]
  - PAIN [None]
  - OFF LABEL USE [None]
  - PRURITUS [None]
  - ENTEROVESICAL FISTULA [None]
  - MEMORY IMPAIRMENT [None]
  - URINARY TRACT INFECTION [None]
  - RENAL DISORDER [None]
  - HALLUCINATION, AUDITORY [None]
  - DIVERTICULITIS [None]
